FAERS Safety Report 5061893-0 (Version None)
Quarter: 2006Q3

REPORT INFORMATION
  Report Type: 
  Country: None (occurrence: None)
  Receive Date: 20060726
  Receipt Date: 20060714
  Transmission Date: 20061208
  Serious: Yes (Hospitalization)
  Sender: FDA-Public Use
  Company Number: PHBS2006CH10471

PATIENT
  Age: 81 Year
  Sex: Female

DRUGS (4)
  1. EMSELEX EXTENDED RELEASE [Suspect]
     Dosage: 7.5 MG/D
     Route: 065
     Dates: start: 20060601, end: 20060627
  2. DEROXAT [Suspect]
  3. ISOPTIN [Concomitant]
  4. ASPIRIN [Concomitant]

REACTIONS (2)
  - HYPONATRAEMIA [None]
  - URINARY TRACT INFECTION [None]
